FAERS Safety Report 6178904-1 (Version None)
Quarter: 2009Q2

REPORT INFORMATION
  Report Type: 
  Country: None (occurrence: None)
  Receive Date: 20090505
  Receipt Date: 20090422
  Transmission Date: 20091009
  Serious: Yes (Other)
  Sender: FDA-Public Use
  Company Number: GB-PFIZER INC-2009202070

PATIENT

DRUGS (6)
  1. CHAMPIX [Suspect]
     Dosage: 0.5 MG, UNK
     Route: 048
     Dates: start: 20090325, end: 20090329
  2. LEVOTHYROXINE SODIUM [Concomitant]
     Dosage: 125 UG, 1X/DAY
  3. PERINDOPRIL [Concomitant]
     Dosage: 4 MG, 1X/DAY
  4. BENDROFLUMETHIAZIDE [Concomitant]
     Dosage: UNK
  5. LORATADINE [Concomitant]
     Dosage: UNK
  6. QVAR 40 [Concomitant]
     Dosage: UNK
     Route: 055

REACTIONS (5)
  - DIARRHOEA [None]
  - NAUSEA [None]
  - NIGHTMARE [None]
  - PALPITATIONS [None]
  - SWOLLEN TONGUE [None]
